FAERS Safety Report 14208394 (Version 1)
Quarter: 2017Q4

REPORT INFORMATION
  Report Type: Spontaneous
  Country: US (occurrence: US)
  Receive Date: 20171121
  Receipt Date: 20171121
  Transmission Date: 20180321
  Serious: No
  Sender: FDA-Public Use
  Company Number: US-BRISTOL-MYERS SQUIBB COMPANY-BMS-2017-104862

PATIENT
  Age: 56 Year
  Sex: Male
  Weight: 64.4 kg

DRUGS (1)
  1. SPRYCEL [Suspect]
     Active Substance: DASATINIB
     Indication: CHRONIC MYELOID LEUKAEMIA
     Dosage: 60 MG, QD
     Route: 048
     Dates: start: 20171114

REACTIONS (3)
  - Headache [Unknown]
  - Dizziness [Unknown]
  - Dysstasia [Unknown]

NARRATIVE: CASE EVENT DATE: 20171117
